FAERS Safety Report 25393633 (Version 1)
Quarter: 2025Q2

REPORT INFORMATION
  Report Type: Report from Study
  Country: NL (occurrence: NL)
  Receive Date: 20250604
  Receipt Date: 20250604
  Transmission Date: 20250716
  Serious: Yes (Other)
  Sender: ABBVIE
  Company Number: NL-ABBVIE-6310003

PATIENT
  Age: 68 Year
  Sex: Male

DRUGS (1)
  1. FOSCARBIDOPA\FOSLEVODOPA [Suspect]
     Active Substance: FOSCARBIDOPA\FOSLEVODOPA
     Indication: Parkinson^s disease
     Route: 058
     Dates: start: 20240415

REACTIONS (3)
  - Depressed level of consciousness [Not Recovered/Not Resolved]
  - Device issue [Not Recovered/Not Resolved]
  - Somnolence [Not Recovered/Not Resolved]
